FAERS Safety Report 25732057 (Version 1)
Quarter: 2025Q3

REPORT INFORMATION
  Report Type: Spontaneous
  Country: US (occurrence: US)
  Receive Date: 20250827
  Receipt Date: 20250827
  Transmission Date: 20251020
  Serious: No
  Sender: DR REDDYS
  Company Number: US-DRL-USA-USA/2025/08/011994

PATIENT

DRUGS (1)
  1. LIOTHYRONINE SODIUM [Suspect]
     Active Substance: LIOTHYRONINE SODIUM
     Indication: Product used for unknown indication
     Route: 065

REACTIONS (5)
  - Flatulence [Unknown]
  - Abdominal pain [Unknown]
  - Rash [Unknown]
  - Dry eye [Unknown]
  - Brain fog [Unknown]
